FAERS Safety Report 10026839 (Version 2)
Quarter: 2014Q2

REPORT INFORMATION
  Report Type: Report from Study
  Country: JP (occurrence: JP)
  Receive Date: 20140321
  Receipt Date: 20140430
  Transmission Date: 20141212
  Serious: Yes (Hospitalization)
  Sender: FDA-Public Use
  Company Number: JP-SA-2014SA033791

PATIENT
  Age: 27 Year
  Sex: Male
  Weight: 73 kg

DRUGS (12)
  1. THYMOGLOBULINE [Suspect]
     Indication: APLASTIC ANAEMIA
     Route: 042
     Dates: start: 20130226, end: 20130302
  2. MEROPEN [Concomitant]
     Indication: INFECTION PROPHYLAXIS
     Dates: start: 20130216, end: 20130321
  3. FIRSTCIN [Concomitant]
     Indication: INFECTION PROPHYLAXIS
     Route: 042
     Dates: start: 20130214, end: 20130308
  4. NEORAL [Concomitant]
     Indication: APLASTIC ANAEMIA
     Dates: start: 20130215
  5. BAKTAR [Concomitant]
     Indication: INFECTION PROPHYLAXIS
     Dates: start: 20130215, end: 20130403
  6. NEUTROGIN [Concomitant]
     Indication: APLASTIC ANAEMIA
     Dates: start: 20130216, end: 20130416
  7. FLUCONAZOLE [Concomitant]
     Indication: INFECTION PROPHYLAXIS
     Dates: start: 20130219, end: 20130306
  8. ITRIZOLE [Concomitant]
     Indication: INFECTION PROPHYLAXIS
     Dates: start: 20130222
  9. REBAMIPIDE [Concomitant]
     Indication: GASTRITIS PROPHYLAXIS
     Dates: start: 20130222
  10. HUMULIN R [Concomitant]
     Indication: HYPERGLYCAEMIA
     Dates: start: 20130226, end: 20130304
  11. SOL-MELCORT [Concomitant]
     Indication: APLASTIC ANAEMIA
     Dates: start: 20130226, end: 20130303
  12. LASIX [Concomitant]
     Indication: PROPHYLAXIS
     Route: 042
     Dates: start: 20130302, end: 20130305

REACTIONS (1)
  - Febrile neutropenia [Recovering/Resolving]
